FAERS Safety Report 23050689 (Version 1)
Quarter: 2023Q4

REPORT INFORMATION
  Report Type: Report from Study
  Country: CA (occurrence: CA)
  Receive Date: 20231010
  Receipt Date: 20231010
  Transmission Date: 20240109
  Serious: Yes (Other)
  Sender: FDA-Public Use
  Company Number: CA-ABBVIE-5386408

PATIENT
  Age: 74 Year
  Sex: Male
  Weight: 89 kg

DRUGS (2)
  1. VENCLEXTA [Suspect]
     Active Substance: VENETOCLAX
     Indication: Acute myeloid leukaemia
     Route: 048
     Dates: start: 20230823, end: 20230905
  2. AZACITIDINE [Concomitant]
     Active Substance: AZACITIDINE
     Indication: Acute myeloid leukaemia
     Route: 058
     Dates: start: 20230823, end: 20230829

REACTIONS (3)
  - Acute myeloid leukaemia [Unknown]
  - Off label use [Unknown]
  - Chloroma [Not Recovered/Not Resolved]

NARRATIVE: CASE EVENT DATE: 20230823
